FAERS Safety Report 6327088-5 (Version None)
Quarter: 2009Q3

REPORT INFORMATION
  Report Type: 
  Country: None (occurrence: None)
  Receive Date: 20090825
  Receipt Date: 20090814
  Transmission Date: 20100115
  Serious: Yes (Hospitalization)
  Sender: FDA-Public Use
  Company Number: US-ROCHE-651214

PATIENT
  Sex: Female

DRUGS (8)
  1. TAMIFLU [Suspect]
     Indication: INFLUENZA
     Route: 048
     Dates: start: 20090703, end: 20090806
  2. TAMIFLU [Suspect]
     Route: 048
     Dates: start: 20090626, end: 20090701
  3. RIMANTADINE HYDROCHLORIDE [Concomitant]
     Indication: INFLUENZA
     Route: 048
     Dates: start: 20090703, end: 20090806
  4. RIMANTADINE HYDROCHLORIDE [Concomitant]
     Route: 048
     Dates: start: 20090626, end: 20090701
  5. ZANAMIVIR [Concomitant]
     Indication: INFLUENZA
     Route: 055
  6. ZANAMIVIR [Concomitant]
     Route: 042
     Dates: start: 20090807
  7. RIBAVIRIN [Concomitant]
     Indication: INFLUENZA
     Route: 065
     Dates: start: 20090807, end: 20090813
  8. RIBAVIRIN [Concomitant]
     Route: 042
     Dates: start: 20090813

REACTIONS (6)
  - BONE MARROW DISORDER [None]
  - DRUG INEFFECTIVE [None]
  - FEBRILE NEUTROPENIA [None]
  - NEUTROPENIA [None]
  - PNEUMOCYSTIS JIROVECI PNEUMONIA [None]
  - STAPHYLOCOCCAL BACTERAEMIA [None]
